FAERS Safety Report 5956792-3 (Version None)
Quarter: 2008Q4

REPORT INFORMATION
  Report Type: 
  Country: None (occurrence: None)
  Receive Date: 20081118
  Receipt Date: 20081107
  Transmission Date: 20090506
  Serious: Yes (Other)
  Sender: FDA-Public Use
  Company Number: US-AVENTIS-200817679US

PATIENT
  Sex: Female
  Weight: 58.97 kg

DRUGS (4)
  1. KETEK [Suspect]
     Dosage: DOSE: UNK
  2. ASPIRIN [Concomitant]
     Indication: HEADACHE
     Dates: start: 20010101
  3. LEFLUNOMIDE [Concomitant]
     Indication: ARTHRITIS
     Dates: start: 20040706
  4. PLAQUENIL                          /00072601/ [Concomitant]
     Indication: ARTHRITIS
     Dates: start: 20081106

REACTIONS (2)
  - CRYPTOGENIC CIRRHOSIS [None]
  - LIVER DISORDER [None]
